FAERS Safety Report 24823716 (Version 1)
Quarter: 2025Q1

REPORT INFORMATION
  Report Type: Spontaneous
  Country: US (occurrence: US)
  Receive Date: 20250109
  Receipt Date: 20250109
  Transmission Date: 20250409
  Serious: Yes (Life-Threatening, Hospitalization, Other)
  Sender: HETERO
  Company Number: US-AMAROX PHARMA-HET2024US05150

PATIENT
  Age: 65 Year
  Sex: Male

DRUGS (2)
  1. CLOPIDOGREL [Suspect]
     Active Substance: CLOPIDOGREL BISULFATE
     Indication: Antiplatelet therapy
     Route: 065
  2. ASPIRIN [Suspect]
     Active Substance: ASPIRIN
     Indication: Antiplatelet therapy
     Route: 065

REACTIONS (2)
  - Acute cholecystitis necrotic [Recovered/Resolved]
  - Haemorrhagic cholecystitis [Recovered/Resolved]
